FAERS Safety Report 10472520 (Version 1)
Quarter: 2014Q3

REPORT INFORMATION
  Report Type: Spontaneous
  Country: AR (occurrence: None)
  Receive Date: 20140922
  Receipt Date: 20140922
  Transmission Date: 20150326
  Serious: Yes (Death)
  Sender: FDA-Public Use
  Company Number: IMP_07920_2014

PATIENT
  Age: 54 Year
  Sex: Male

DRUGS (4)
  1. RASAGALINE [Suspect]
     Active Substance: RASAGILINE
     Indication: PARKINSON^S DISEASE
     Dosage: 1 MG
  2. ENTACAPONE. [Suspect]
     Active Substance: ENTACAPONE
     Indication: PARKINSON^S DISEASE
     Dosage: 800 MG
  3. CARBIDOPA/LEVODOPA [Suspect]
     Active Substance: CARBIDOPA\LEVODOPA
     Indication: PARKINSON^S DISEASE
     Dosage: (DF [60MG/ 600MG])
  4. AMANTADINE [Suspect]
     Active Substance: AMANTADINE
     Indication: PARKINSON^S DISEASE

REACTIONS (2)
  - Coronary artery disease [None]
  - Sudden death [None]
